FAERS Safety Report 4831509-4 (Version None)
Quarter: 2005Q4

REPORT INFORMATION
  Report Type: 
  Country: None (occurrence: None)
  Receive Date: 20051114
  Receipt Date: 20051107
  Transmission Date: 20060501
  Serious: Yes (Death, Hospitalization, Other)
  Sender: FDA-Public Use
  Company Number: 2005138987

PATIENT
  Age: 55 Year
  Sex: Male

DRUGS (11)
  1. HYDROCORTISONE ACETATE [Suspect]
     Indication: ILL-DEFINED DISORDER
     Dosage: 30 MG (30 MG, 1 IN 1 D)
  2. METHOTREXATE [Suspect]
     Indication: RHEUMATOID ARTHRITIS
     Dosage: (15 MG, 1 WK), ORAL
     Route: 048
     Dates: start: 20041101
  3. KINERET [Suspect]
     Indication: AMYLOIDOSIS
     Dosage: 100 MG (100 MG, 1 IN 1 D), SUBCUTANEOUS
     Route: 058
     Dates: start: 20050311, end: 20050322
  4. KINERET [Suspect]
     Indication: RHEUMATOID ARTHRITIS
     Dosage: 100 MG (100 MG, 1 IN 1 D), SUBCUTANEOUS
     Route: 058
     Dates: start: 20050311, end: 20050322
  5. FOLIC ACID [Suspect]
     Indication: ILL-DEFINED DISORDER
     Dosage: 5 MG
     Dates: start: 20041101
  6. ATORVASTATIN CALCIUM [Concomitant]
  7. PERINDOPRIL [Concomitant]
  8. CELECOXIB [Concomitant]
  9. WARFARIN SODIUM [Concomitant]
  10. RANITIDINE HYDROCHLORIDE [Concomitant]
  11. DICLOFENAC SODIUM [Concomitant]

REACTIONS (13)
  - ARM AMPUTATION [None]
  - ARTHRALGIA [None]
  - BLISTER [None]
  - DIARRHOEA [None]
  - DRUG INEFFECTIVE [None]
  - GANGRENE [None]
  - INTERNATIONAL NORMALISED RATIO INCREASED [None]
  - NECROTISING FASCIITIS STREPTOCOCCAL [None]
  - RENAL FAILURE [None]
  - STREPTOCOCCAL SEPSIS [None]
  - STRESS AT WORK [None]
  - VOMITING [None]
  - WHITE BLOOD CELL COUNT DECREASED [None]
